FAERS Safety Report 5755401-6 (Version None)
Quarter: 2008Q2

REPORT INFORMATION
  Report Type: 
  Country: None (occurrence: None)
  Receive Date: 20080529
  Receipt Date: 20080529
  Transmission Date: 20081010
  Serious: Yes (Hospitalization)
  Sender: FDA-Public Use
  Company Number: None

PATIENT
  Sex: Female
  Weight: 71.67 kg

DRUGS (3)
  1. APREPITANT [Suspect]
     Dosage: 80 MG PO QD
     Route: 048
     Dates: start: 20070214, end: 20070221
  2. ONDANSETRON [Suspect]
     Dates: start: 20070214, end: 20070221
  3. DEXAMETHASONE TAB [Suspect]
     Dates: start: 20070214, end: 20070221

REACTIONS (1)
  - ATRIAL FIBRILLATION [None]
